FAERS Safety Report 6194293-0 (Version None)
Quarter: 2009Q2

REPORT INFORMATION
  Report Type: 
  Country: None (occurrence: None)
  Receive Date: 20090519
  Receipt Date: 20090515
  Transmission Date: 20091009
  Serious: Yes (Other)
  Sender: FDA-Public Use
  Company Number: US-BRISTOL-MYERS SQUIBB COMPANY-14625594

PATIENT
  Age: 72 Year
  Sex: Female
  Weight: 62 kg

DRUGS (11)
  1. ORENCIA [Suspect]
     Indication: RHEUMATOID ARTHRITIS
     Dosage: ORENCIA 700MG INFUSIONS
     Dates: start: 20080901
  2. SUCRALFATE [Concomitant]
  3. METHOTREXATE [Concomitant]
  4. CLONAZEPAM [Concomitant]
  5. SERTRALINE HCL [Concomitant]
  6. METFORMIN HCL [Concomitant]
  7. LIPITOR [Concomitant]
  8. ASPIRIN [Concomitant]
  9. CALCIUM CARBONATE [Concomitant]
  10. ALBUTEROL [Concomitant]
     Route: 055
  11. FLOVENT [Concomitant]
     Dosage: BID

REACTIONS (3)
  - FALL [None]
  - HUMERUS FRACTURE [None]
  - MULTIPLE MYELOMA [None]
